FAERS Safety Report 7428419-5 (Version None)
Quarter: 2011Q2

REPORT INFORMATION
  Report Type: 
  Country: None (occurrence: None)
  Receive Date: 20110421
  Receipt Date: 20110415
  Transmission Date: 20111010
  Serious: Yes (Other)
  Sender: FDA-Public Use
  Company Number: PHHY2011BR27275

PATIENT
  Age: 52 Year
  Sex: Male

DRUGS (9)
  1. MANTIDAN [Concomitant]
     Dosage: 3 DF, QD
     Route: 048
  2. TOLTERODINE TARTRATE [Concomitant]
     Indication: URINARY INCONTINENCE
     Dosage: 3 DF, QD
     Route: 048
  3. PROLOPA [Concomitant]
     Indication: PARKINSON'S DISEASE
     Dosage: 1 DF, QD
     Route: 048
  4. COMTAN [Suspect]
     Dosage: 4 DF, DAILY
     Route: 048
     Dates: end: 20110329
  5. PROLOPA [Concomitant]
     Dosage: 7 DF, QD
     Route: 048
  6. COMTAN [Suspect]
     Indication: PARKINSON'S DISEASE
     Dosage: 1 DF, QD
     Route: 048
     Dates: start: 20110201
  7. BUPROPION [Concomitant]
     Dosage: 1 DF, QD
     Route: 048
  8. SIFROL [Concomitant]
     Dosage: 3 DF, QD
     Route: 048
  9. FLUOXETINE [Concomitant]
     Dosage: 1 DF, QD
     Route: 048

REACTIONS (11)
  - CHROMATURIA [None]
  - DRUG INEFFECTIVE [None]
  - PARKINSON'S DISEASE [None]
  - DEPRESSION [None]
  - PYREXIA [None]
  - MALAISE [None]
  - PARAESTHESIA [None]
  - FLATULENCE [None]
  - FEELING ABNORMAL [None]
  - INTESTINAL FUNCTIONAL DISORDER [None]
  - URINARY INCONTINENCE [None]
